FAERS Safety Report 19363736 (Version 3)
Quarter: 2021Q2

REPORT INFORMATION
  Report Type: Spontaneous
  Country: US (occurrence: US)
  Receive Date: 20210602
  Receipt Date: 20210612
  Transmission Date: 20210717
  Serious: Yes (Hospitalization)
  Sender: FDA-Public Use
  Company Number: US-UNITED THERAPEUTICS-UNT-2021-009973

PATIENT
  Age: 56 Year
  Sex: Male

DRUGS (4)
  1. REMODULIN [Suspect]
     Active Substance: TREPROSTINIL
     Indication: PULMONARY ARTERIAL HYPERTENSION
     Dosage: UNK, CONTINUING
     Route: 058
     Dates: start: 20200319
  2. REMODULIN [Suspect]
     Active Substance: TREPROSTINIL
     Dosage: 0.0391 ?G/KG, CONTINUING
     Route: 058
  3. REMODULIN [Suspect]
     Active Substance: TREPROSTINIL
     Dosage: 0.0361 ?G/KG, CONTINUING
     Route: 058
  4. REMODULIN [Suspect]
     Active Substance: TREPROSTINIL
     Dosage: 0.0288 ?G/KG, CONTINUING
     Route: 058

REACTIONS (7)
  - Dysphagia [Not Recovered/Not Resolved]
  - Visual impairment [Unknown]
  - Dysphonia [Unknown]
  - Ear neoplasm [Unknown]
  - Eyelid ptosis [Not Recovered/Not Resolved]
  - Dysarthria [Not Recovered/Not Resolved]
  - Feeding disorder [Unknown]

NARRATIVE: CASE EVENT DATE: 20210527
